FAERS Safety Report 16346676 (Version 1)
Quarter: 2019Q2

REPORT INFORMATION
  Report Type: Spontaneous
  Country: GB (occurrence: GB)
  Receive Date: 20190523
  Receipt Date: 20190523
  Transmission Date: 20190711
  Serious: Yes (Hospitalization)
  Sender: FDA-Public Use
  Company Number: GB-ACCORD-128794

PATIENT
  Age: 72 Year
  Sex: Female

DRUGS (12)
  1. MIRABEGRON [Concomitant]
     Active Substance: MIRABEGRON
  2. CALCIUM CARBONATE/COLECALCIFEROL [Concomitant]
  3. ITRACONAZOLE. [Concomitant]
     Active Substance: ITRACONAZOLE
  4. COLISTIN [Concomitant]
     Active Substance: COLISTIN
  5. NEFOPAM [Concomitant]
     Active Substance: NEFOPAM
  6. SALBUTAMOL [Concomitant]
     Active Substance: ALBUTEROL
  7. LEVOTHYROXINE. [Concomitant]
     Active Substance: LEVOTHYROXINE
  8. RAMIPRIL. [Suspect]
     Active Substance: RAMIPRIL
     Indication: ESSENTIAL HYPERTENSION
     Dosage: IN THE MORNING
     Route: 048
     Dates: start: 20160101, end: 20190321
  9. FLUOXETINE [Concomitant]
     Active Substance: FLUOXETINE HYDROCHLORIDE
  10. BUMETANIDE. [Concomitant]
     Active Substance: BUMETANIDE
  11. RELVAR ELLIPTA [Concomitant]
     Active Substance: FLUTICASONE FUROATE\VILANTEROL TRIFENATATE
  12. ALENDRONIC ACID [Concomitant]
     Active Substance: ALENDRONIC ACID

REACTIONS (4)
  - Acute kidney injury [Unknown]
  - Constipation [Unknown]
  - Orthostatic hypotension [Recovered/Resolved]
  - Loss of consciousness [Unknown]

NARRATIVE: CASE EVENT DATE: 20190320
